FAERS Safety Report 8121620-7 (Version None)
Quarter: 2012Q1

REPORT INFORMATION
  Report Type: 
  Country: None (occurrence: None)
  Receive Date: 20120208
  Receipt Date: 20120208
  Transmission Date: 20120608
  Serious: Yes (Death, Life-Threatening, Hospitalization, Disabling)
  Sender: FDA-Public Use
  Company Number: None

PATIENT
  Age: 38 Year
  Sex: Male
  Weight: 90.718 kg

DRUGS (1)
  1. AMERICAN ELIQUID [Suspect]
     Indication: TOBACCO USER
     Dosage: 21MG NICOTINE PER ML VG
     Route: 055
     Dates: start: 20120101, end: 20120128

REACTIONS (4)
  - MYOCARDIAL INFARCTION [None]
  - ARTERIOSCLEROSIS CORONARY ARTERY [None]
  - CARDIAC ARREST [None]
  - CORONARY ARTERY OCCLUSION [None]
